FAERS Safety Report 4761147-3 (Version None)
Quarter: 2005Q3

REPORT INFORMATION
  Report Type: 
  Country: None (occurrence: None)
  Receive Date: 20050901
  Receipt Date: 20050820
  Transmission Date: 20060218
  Serious: Yes (Other)
  Sender: FDA-Public Use
  Company Number: 2005118227

PATIENT
  Age: 22 Year
  Sex: Male
  Weight: 77.1115 kg

DRUGS (2)
  1. DRAMAMINE [Suspect]
     Indication: EUPHORIC MOOD
     Dosage: 7-10 TABS PER DAY ORAL
     Route: 048
  2. GUAIFENESIN [Concomitant]

REACTIONS (2)
  - BRADYPHRENIA [None]
  - INTENTIONAL MISUSE [None]
